FAERS Safety Report 16364214 (Version 14)
Quarter: 2021Q2

REPORT INFORMATION
  Report Type: Report from Study
  Country: BR (occurrence: BR)
  Receive Date: 20190528
  Receipt Date: 20210618
  Transmission Date: 20210716
  Serious: Yes (Life-Threatening, Other)
  Sender: FDA-Public Use
  Company Number: PHHY2018BR099274

PATIENT
  Age: 49 Year
  Sex: Female
  Weight: 80 kg

DRUGS (11)
  1. COSENTYX [Suspect]
     Active Substance: SECUKINUMAB
     Dosage: 300 MG, QMO
     Route: 058
     Dates: start: 20181107
  2. VELIJA [Concomitant]
     Active Substance: DULOXETINE HYDROCHLORIDE
     Indication: PRODUCT USED FOR UNKNOWN INDICATION
     Dosage: UNK UNK, QW
     Route: 065
  3. COSENTYX [Suspect]
     Active Substance: SECUKINUMAB
     Indication: ANKYLOSING SPONDYLITIS
     Dosage: 300 MG, QW
     Route: 058
  4. COSENTYX [Suspect]
     Active Substance: SECUKINUMAB
     Dosage: UNK
     Route: 065
     Dates: start: 20191211
  5. DOXORUBICIN [Suspect]
     Active Substance: DOXORUBICIN
     Indication: PRODUCT USED FOR UNKNOWN INDICATION
     Dosage: UNK
     Route: 065
  6. MORPHINE [Concomitant]
     Active Substance: MORPHINE
     Indication: ARTHRALGIA
     Dosage: UNK
     Route: 065
  7. CLONAZEPAM. [Concomitant]
     Active Substance: CLONAZEPAM
     Indication: PRODUCT USED FOR UNKNOWN INDICATION
     Dosage: UNK
     Route: 065
  8. COSENTYX [Suspect]
     Active Substance: SECUKINUMAB
     Dosage: 300 MG, QMO
     Route: 058
     Dates: start: 20190508
  9. COSENTYX [Suspect]
     Active Substance: SECUKINUMAB
     Indication: PSORIATIC ARTHROPATHY
     Dosage: 300 MG, Q2W (PEN)
     Route: 058
     Dates: start: 20180910, end: 20181008
  10. COSENTYX [Suspect]
     Active Substance: SECUKINUMAB
     Dosage: 300 MG, UNKNOWN
     Route: 065
     Dates: start: 2018
  11. LITHIUM. [Concomitant]
     Active Substance: LITHIUM
     Indication: PRODUCT USED FOR UNKNOWN INDICATION
     Dosage: UNK
     Route: 065

REACTIONS (63)
  - Inflammatory pain [Not Recovered/Not Resolved]
  - Arthralgia [Not Recovered/Not Resolved]
  - Memory impairment [Not Recovered/Not Resolved]
  - Hepatic steatosis [Not Recovered/Not Resolved]
  - Inappropriate schedule of product administration [Not Recovered/Not Resolved]
  - Inflammation [Not Recovered/Not Resolved]
  - Ankylosing spondylitis [Unknown]
  - Psoriatic arthropathy [Recovered/Resolved]
  - Fatigue [Unknown]
  - Hernia [Unknown]
  - Skin exfoliation [Not Recovered/Not Resolved]
  - Crystal urine [Unknown]
  - Hypertension [Unknown]
  - Decreased appetite [Not Recovered/Not Resolved]
  - Musculoskeletal stiffness [Not Recovered/Not Resolved]
  - Peripheral swelling [Unknown]
  - Neuropathy peripheral [Unknown]
  - Pain [Not Recovered/Not Resolved]
  - Suicidal ideation [Not Recovered/Not Resolved]
  - Oropharyngeal pain [Unknown]
  - Emotional distress [Unknown]
  - Vomiting [Unknown]
  - Limb injury [Recovering/Resolving]
  - Intervertebral disc disorder [Not Recovered/Not Resolved]
  - Breath odour [Unknown]
  - Eye pain [Recovering/Resolving]
  - Panic attack [Recovered/Resolved]
  - Somnolence [Unknown]
  - Mass [Unknown]
  - Insomnia [Not Recovered/Not Resolved]
  - Gait disturbance [Unknown]
  - Rhinitis [Unknown]
  - Urine abnormality [Unknown]
  - Therapeutic response shortened [Unknown]
  - Bipolar disorder [Recovered/Resolved]
  - Rheumatic disorder [Not Recovered/Not Resolved]
  - Uveitis [Recovering/Resolving]
  - Pruritus [Unknown]
  - Scab [Recovering/Resolving]
  - Dysarthria [Unknown]
  - Blood pressure abnormal [Unknown]
  - Drug resistance [Not Recovered/Not Resolved]
  - Arthritis [Not Recovered/Not Resolved]
  - Posture abnormal [Unknown]
  - General physical health deterioration [Not Recovered/Not Resolved]
  - Fibromyalgia [Unknown]
  - Discharge [Unknown]
  - Tachycardia [Unknown]
  - Pain in extremity [Not Recovered/Not Resolved]
  - Dysgeusia [Unknown]
  - Psoriasis [Unknown]
  - Wound complication [Unknown]
  - Mobility decreased [Not Recovered/Not Resolved]
  - Skin mass [Unknown]
  - Dry mouth [Unknown]
  - Headache [Not Recovered/Not Resolved]
  - Drug ineffective [Unknown]
  - Appendicitis [Unknown]
  - Back pain [Unknown]
  - Spinal pain [Not Recovered/Not Resolved]
  - Drug dependence [Not Recovered/Not Resolved]
  - Musculoskeletal discomfort [Not Recovered/Not Resolved]
  - Neck pain [Not Recovered/Not Resolved]

NARRATIVE: CASE EVENT DATE: 201809
